FAERS Safety Report 22346289 (Version 2)
Quarter: 2023Q2

REPORT INFORMATION
  Report Type: Spontaneous
  Country: IR (occurrence: IR)
  Receive Date: 20230519
  Receipt Date: 20230523
  Transmission Date: 20230721
  Serious: Yes (Life-Threatening)
  Sender: FDA-Public Use
  Company Number: IR-BAUSCH-BL-2023-007355

PATIENT
  Age: 40 Year
  Sex: Male

DRUGS (4)
  1. DEXAMETHASONE [Suspect]
     Active Substance: DEXAMETHASONE
     Indication: COVID-19
     Route: 042
     Dates: start: 2021, end: 2021
  2. REMDESIVIR [Concomitant]
     Active Substance: REMDESIVIR
     Indication: COVID-19
     Dosage: ON DAY ONE
     Route: 042
     Dates: start: 2021, end: 2021
  3. REMDESIVIR [Concomitant]
     Active Substance: REMDESIVIR
     Route: 042
  4. INSULIN NOS [Concomitant]
     Active Substance: INSULIN NOS
     Indication: Diabetes mellitus
     Route: 042
     Dates: start: 2021

REACTIONS (5)
  - Subarachnoid haemorrhage [Unknown]
  - Myocardial infarction [Unknown]
  - Rhinocerebral mucormycosis [Unknown]
  - Infective aneurysm [Unknown]
  - Cavernous sinus thrombosis [Unknown]

NARRATIVE: CASE EVENT DATE: 20210101
